FAERS Safety Report 8750651 (Version 2)
Quarter: 2012Q4

REPORT INFORMATION
  Report Type: Spontaneous
  Country: US (occurrence: None)
  Receive Date: 20120813
  Receipt Date: 20120829
  Transmission Date: 20130627
  Serious: Yes (Other)
  Sender: FDA-Public Use
  Company Number: 2012SA056380

PATIENT
  Age: 61 Year
  Sex: Male
  Weight: 90 kg

DRUGS (1)
  1. CAPSAICIN [Suspect]
     Indication: ARTHRALGIA
     Dates: start: 20120803, end: 20120803

REACTIONS (2)
  - Application site vesicles [None]
  - Application site erythema [None]
